FAERS Safety Report 5383237-7 (Version None)
Quarter: 2007Q3

REPORT INFORMATION
  Report Type: 
  Country: None (occurrence: None)
  Receive Date: 20070710
  Receipt Date: 20070629
  Transmission Date: 20080115
  Serious: Yes (Hospitalization)
  Sender: FDA-Public Use
  Company Number: JP-PFIZER INC-2007054333

PATIENT
  Age: 29 Year
  Sex: Male

DRUGS (2)
  1. SOLU-MEDROL [Suspect]
     Indication: HENOCH-SCHONLEIN PURPURA
  2. PREDONINE [Suspect]
     Indication: HENOCH-SCHONLEIN PURPURA

REACTIONS (3)
  - ENDOCARDITIS [None]
  - PNEUMONIA PNEUMOCOCCAL [None]
  - STREPTOCOCCAL SEPSIS [None]
